FAERS Safety Report 13538572 (Version 1)
Quarter: 2017Q2

REPORT INFORMATION
  Report Type: Spontaneous
  Country: US (occurrence: US)
  Receive Date: 20170512
  Receipt Date: 20170512
  Transmission Date: 20170830
  Serious: No
  Sender: FDA-Public Use
  Company Number: US-ELI_LILLY_AND_COMPANY-US201705001559

PATIENT
  Age: 72 Year
  Sex: Female

DRUGS (2)
  1. HUMALOG [Suspect]
     Active Substance: INSULIN LISPRO
     Dosage: 06 U, PRN
     Route: 058
  2. HUMALOG [Suspect]
     Active Substance: INSULIN LISPRO
     Indication: TYPE 2 DIABETES MELLITUS
     Dosage: 06 U, PRN
     Route: 058

REACTIONS (9)
  - Joint dislocation [Recovering/Resolving]
  - Nerve compression [Recovering/Resolving]
  - Fall [Recovered/Resolved]
  - Rotator cuff syndrome [Recovering/Resolving]
  - Nerve block [Recovering/Resolving]
  - Headache [Recovering/Resolving]
  - Blood glucose increased [Not Recovered/Not Resolved]
  - Pain [Unknown]
  - Drug ineffective [Unknown]

NARRATIVE: CASE EVENT DATE: 20170314
